FAERS Safety Report 10562314 (Version 1)
Quarter: 2014Q4

REPORT INFORMATION
  Report Type: Spontaneous
  Country: US (occurrence: None)
  Receive Date: 20141031
  Receipt Date: 20141031
  Transmission Date: 20150529
  Serious: Yes (Other)
  Sender: FDA-Public Use
  Company Number: 2574947

PATIENT
  Age: 44 Year
  Sex: Male

DRUGS (2)
  1. VANCOMYCIN HYDROCHLORIDE. [Suspect]
     Active Substance: VANCOMYCIN HYDROCHLORIDE
     Indication: INFECTION
     Dosage: (NOT OTHERWISE SPECIFIED)
     Route: 041
     Dates: start: 20140930
  2. SODIUM CHLORIDE. [Suspect]
     Active Substance: SODIUM CHLORIDE
     Indication: DRUG THERAPY
     Route: 041
     Dates: start: 20140930

REACTIONS (5)
  - Erythema [None]
  - Dyspnoea [None]
  - Urticaria [None]
  - Paraesthesia oral [None]
  - Hypotension [None]

NARRATIVE: CASE EVENT DATE: 20141001
